FAERS Safety Report 6983568-0 (Version None)
Quarter: 2010Q3

REPORT INFORMATION
  Report Type: 
  Country: None (occurrence: None)
  Receive Date: 20100914
  Receipt Date: 20080917
  Transmission Date: 20110219
  Serious: Yes (Other)
  Sender: FDA-Public Use
  Company Number: US-WYE-H06026408

PATIENT
  Sex: Male

DRUGS (1)
  1. TYGACIL [Suspect]
     Indication: INFECTION
     Route: 042

REACTIONS (2)
  - HYPOTENSION [None]
  - SEPTIC SHOCK [None]
